FAERS Safety Report 5339897-X (Version None)
Quarter: 2007Q2

REPORT INFORMATION
  Report Type: 
  Country: None (occurrence: None)
  Receive Date: 20070529
  Receipt Date: 20070517
  Transmission Date: 20071010
  Serious: Yes (Hospitalization)
  Sender: FDA-Public Use
  Company Number: 2007AP000536

PATIENT
  Age: 63 Year
  Sex: Male

DRUGS (4)
  1. GABAPENTIN [Suspect]
     Indication: PAIN
     Dosage: SEE IMAGE
     Route: 048
     Dates: start: 20050101, end: 20050101
  2. GABAPENTIN [Suspect]
     Indication: PAIN
     Dosage: SEE IMAGE
     Route: 048
     Dates: end: 20050101
  3. GABAPENTIN [Suspect]
     Indication: PAIN
     Dosage: SEE IMAGE
     Route: 048
     Dates: start: 20050101
  4. OXYCODONE HCL [Concomitant]

REACTIONS (13)
  - AGITATION [None]
  - CONFUSIONAL STATE [None]
  - DELIRIUM TREMENS [None]
  - DRUG EFFECT DECREASED [None]
  - DRUG WITHDRAWAL SYNDROME [None]
  - FATIGUE [None]
  - HALLUCINATION [None]
  - HYPERHIDROSIS [None]
  - INTENTIONAL OVERDOSE [None]
  - PYREXIA [None]
  - SEDATION [None]
  - TACHYCARDIA [None]
  - TREMOR [None]
